FAERS Safety Report 14783001 (Version 3)
Quarter: 2019Q2

REPORT INFORMATION
  Report Type: Report from Study
  Country: CA (occurrence: CA)
  Receive Date: 20180420
  Receipt Date: 20190610
  Transmission Date: 20190711
  Serious: Yes (Other)
  Sender: FDA-Public Use
  Company Number: CA-ROCHE-2109851

PATIENT
  Age: 45 Year
  Sex: Female

DRUGS (5)
  1. TYLENOL [Concomitant]
     Active Substance: ACETAMINOPHEN
  2. OCREVUS [Suspect]
     Active Substance: OCRELIZUMAB
     Indication: RELAPSING-REMITTING MULTIPLE SCLEROSIS
     Dosage: 2ND DOSE
     Route: 042
     Dates: start: 20171115
  3. NAPROSYN [Concomitant]
     Active Substance: NAPROXEN
  4. OCREVUS [Suspect]
     Active Substance: OCRELIZUMAB
     Indication: MULTIPLE SCLEROSIS
     Dosage: 300 MG DAY 0, DAY 14 THEN 600 MG EVERY 6 MONTHS
     Route: 042
     Dates: start: 20171031
  5. ADVIL [IBUPROFEN] [Concomitant]
     Active Substance: IBUPROFEN

REACTIONS (7)
  - Fatigue [Recovered/Resolved]
  - Dizziness [Recovered/Resolved]
  - Endometrial disorder [Unknown]
  - Diarrhoea [Recovered/Resolved]
  - Uterine leiomyoma [Unknown]
  - Nasopharyngitis [Recovered/Resolved]
  - Nausea [Recovered/Resolved]

NARRATIVE: CASE EVENT DATE: 20180415
